FAERS Safety Report 8423762-5 (Version None)
Quarter: 2012Q2

REPORT INFORMATION
  Report Type: 
  Country: None (occurrence: None)
  Receive Date: 20120608
  Receipt Date: 20120209
  Transmission Date: 20120825
  Serious: No
  Sender: FDA-Public Use
  Company Number: US-ASTRAZENECA-2012SE08664

PATIENT
  Age: 62 Year
  Sex: Female

DRUGS (11)
  1. ALDERONE [Concomitant]
  2. POTASSIUM [Concomitant]
     Indication: CARDIAC DISORDER
  3. LASIX [Concomitant]
  4. ATACAND [Suspect]
     Indication: ATRIAL FIBRILLATION
     Route: 048
  5. LISINOPRIL [Suspect]
     Route: 048
  6. COUMADIN [Concomitant]
  7. ATACAND [Suspect]
     Indication: BLOOD PRESSURE ABNORMAL
     Route: 048
  8. ATACAND [Suspect]
     Route: 048
  9. ATACAND [Suspect]
     Route: 048
  10. BETA BLOCKER [Suspect]
     Route: 065
  11. PENICILLIN [Suspect]
     Route: 065

REACTIONS (5)
  - DRUG HYPERSENSITIVITY [None]
  - DISCOMFORT [None]
  - MYALGIA [None]
  - ADVERSE DRUG REACTION [None]
  - PAIN IN EXTREMITY [None]
